FAERS Safety Report 9117309 (Version 2)
Quarter: 2013Q1

REPORT INFORMATION
  Report Type: Spontaneous
  Country: US (occurrence: US)
  Receive Date: 20130225
  Receipt Date: 20130321
  Transmission Date: 20140127
  Serious: No
  Sender: FDA-Public Use
  Company Number: US-BIOGENIDEC-2013BI012885

PATIENT
  Age: 62 Year
  Sex: Female

DRUGS (1)
  1. AVONEX [Suspect]
     Indication: MULTIPLE SCLEROSIS
     Route: 030
     Dates: start: 20130118

REACTIONS (8)
  - Chills [Recovered/Resolved]
  - Angina pectoris [Recovered/Resolved]
  - Underdose [Recovered/Resolved]
  - Musculoskeletal disorder [Recovered/Resolved]
  - Influenza like illness [Recovered/Resolved]
  - Tremor [Recovered/Resolved]
  - Sinus disorder [Recovered/Resolved]
  - Mental impairment [Unknown]
